FAERS Safety Report 5352526-4 (Version None)
Quarter: 2007Q2

REPORT INFORMATION
  Report Type: 
  Country: None (occurrence: None)
  Receive Date: 20070518
  Receipt Date: 20070105
  Transmission Date: 20071010
  Serious: Yes (Hospitalization)
  Sender: FDA-Public Use
  Company Number: Q07-002

PATIENT
  Sex: Male
  Weight: 115 kg

DRUGS (16)
  1. SAMARIUM SM-153 [Suspect]
     Indication: METASTASES TO BONE
     Dosage: 1.25 MCI/KG IV
     Route: 042
     Dates: start: 20060727
  2. SAMARIUM SM-153 [Suspect]
     Indication: PROSTATE CANCER
     Dosage: 1.25 MCI/KG IV
     Route: 042
     Dates: start: 20060727
  3. SAMARIUM SM-153 [Suspect]
     Indication: METASTASES TO BONE
     Dosage: 1.25 MCI/KG IV
     Route: 042
     Dates: start: 20061019
  4. SAMARIUM SM-153 [Suspect]
     Indication: PROSTATE CANCER
     Dosage: 1.25 MCI/KG IV
     Route: 042
     Dates: start: 20061019
  5. ZOLEDRONIC ACID [Suspect]
     Indication: METASTASES TO BONE
     Dosage: 4 MG IV Q4WKS
     Route: 042
     Dates: end: 20061114
  6. ZOLEDRONIC ACID [Suspect]
     Indication: PROSTATE CANCER
     Dosage: 4 MG IV Q4WKS
     Route: 042
     Dates: end: 20061114
  7. DEXAMETHASONE [Concomitant]
  8. PROMETHAZINE [Concomitant]
  9. HYDROMORPHONE HCL [Concomitant]
  10. METRONIDAZOLE [Concomitant]
  11. OXYCODONE HCL [Concomitant]
  12. COUMADIN [Concomitant]
  13. DES [Concomitant]
  14. PROTONIX [Concomitant]
  15. FERROUS SULFATE [Concomitant]
  16. CALCIUM CHLORIDE [Concomitant]

REACTIONS (2)
  - FOOD POISONING [None]
  - GASTRIC INFECTION [None]
